FAERS Safety Report 8335513-3 (Version None)
Quarter: 2012Q2

REPORT INFORMATION
  Report Type: 
  Country: None (occurrence: None)
  Receive Date: 20120503
  Receipt Date: 20120423
  Transmission Date: 20120825
  Serious: Yes (Hospitalization)
  Sender: FDA-Public Use
  Company Number: US-BAXTER-2012BAX004009

PATIENT
  Sex: Female

DRUGS (6)
  1. CYCLOPHOSPHAMIDE [Suspect]
     Indication: BREAST CANCER
     Route: 042
  2. BEVACIZUMAB [Suspect]
     Indication: BREAST CANCER
     Route: 042
  3. BEVACIZUMAB [Suspect]
  4. DOXORUBICIN HCL [Suspect]
     Indication: BREAST CANCER
     Route: 042
  5. PACLITAXEL [Suspect]
     Indication: BREAST CANCER
     Route: 042
  6. PEGFILGRASTIM [Suspect]
     Indication: BREAST CANCER
     Route: 058

REACTIONS (1)
  - HYPOTHYROIDISM [None]
